FAERS Safety Report 26068158 (Version 1)
Quarter: 2025Q4

REPORT INFORMATION
  Report Type: Spontaneous
  Country: US (occurrence: US)
  Receive Date: 20251120
  Receipt Date: 20251120
  Transmission Date: 20260118
  Serious: Yes (Other)
  Sender: COOPERSURGICAL
  Company Number: US-COOPERSURGICAL, INC.-2025CPS007984

PATIENT
  Age: 29 Year
  Sex: Female
  Weight: 97.506 kg

DRUGS (1)
  1. PARAGARD T 380A [Suspect]
     Active Substance: COPPER
     Dosage: UNK
     Route: 015
     Dates: start: 20171206, end: 20240820

REACTIONS (12)
  - Surgery [Recovered/Resolved]
  - Reproductive complication associated with device [Unknown]
  - Device breakage [Recovered/Resolved]
  - Foreign body in reproductive tract [Recovered/Resolved]
  - Complication of device removal [Recovered/Resolved]
  - Embedded device [Recovered/Resolved]
  - Uterine perforation [Recovered/Resolved]
  - Anovulatory cycle [Unknown]
  - Anxiety [Unknown]
  - Depression [Unknown]
  - Amenorrhoea [Unknown]
  - Abnormal uterine bleeding [Unknown]

NARRATIVE: CASE EVENT DATE: 20240801
